FAERS Safety Report 9405143 (Version 1)
Quarter: 2013Q3

REPORT INFORMATION
  Report Type: Report from Study
  Country: US (occurrence: US)
  Receive Date: 20130717
  Receipt Date: 20130717
  Transmission Date: 20140515
  Serious: No
  Sender: FDA-Public Use
  Company Number: US-009507513-1306USA014136

PATIENT
  Age: 53 Year
  Sex: Male
  Weight: 89.34 kg

DRUGS (3)
  1. VICTRELIS [Suspect]
     Dosage: UNK
     Route: 048
     Dates: end: 20130514
  2. REBETOL [Suspect]
     Dosage: UNK
     Route: 048
     Dates: end: 20130514
  3. PEGASYS [Suspect]
     Indication: HEPATITIS C
     Dosage: 180 MICROGRAM, QW
     Route: 058
     Dates: end: 20130514

REACTIONS (1)
  - Skin hypopigmentation [Unknown]
